FAERS Safety Report 18690830 (Version 1)
Quarter: 2021Q1

REPORT INFORMATION
  Report Type: Spontaneous
  Country: US (occurrence: US)
  Receive Date: 20210101
  Receipt Date: 20210101
  Transmission Date: 20210419
  Serious: Yes (Death, Other)
  Sender: FDA-Public Use
  Company Number: US-SA-2020SA377056

PATIENT

DRUGS (1)
  1. ZANTAC [Suspect]
     Active Substance: RANITIDINE HYDROCHLORIDE
     Dosage: UNK
     Dates: start: 200501, end: 201901

REACTIONS (4)
  - Oesophageal carcinoma [Fatal]
  - Bone cancer [Fatal]
  - Throat cancer [Fatal]
  - Nasal cavity cancer [Fatal]

NARRATIVE: CASE EVENT DATE: 201901
